FAERS Safety Report 13114421 (Version 1)
Quarter: 2017Q1

REPORT INFORMATION
  Report Type: Spontaneous
  Country: FR (occurrence: FR)
  Receive Date: 20170113
  Receipt Date: 20170113
  Transmission Date: 20170428
  Serious: Yes (Hospitalization)
  Sender: FDA-Public Use
  Company Number: FR-ELI_LILLY_AND_COMPANY-FR201701001476

PATIENT
  Age: 51 Year
  Sex: Male

DRUGS (3)
  1. CISPLATINE [Suspect]
     Active Substance: CISPLATIN
     Indication: PRODUCT USED FOR UNKNOWN INDICATION
     Dosage: 180 MG, CYCLICAL
     Route: 042
     Dates: start: 20120717, end: 20120918
  2. AVASTIN [Suspect]
     Active Substance: BEVACIZUMAB
     Indication: PRODUCT USED FOR UNKNOWN INDICATION
     Dosage: 500 MG, CYCLICAL
     Route: 042
     Dates: start: 20120717, end: 20121219
  3. ALIMTA [Suspect]
     Active Substance: PEMETREXED DISODIUM
     Indication: PRODUCT USED FOR UNKNOWN INDICATION
     Dosage: 900 MG, CYCLICAL
     Route: 042
     Dates: start: 20120717, end: 20121219

REACTIONS (3)
  - General physical health deterioration [Unknown]
  - Depression [Recovering/Resolving]
  - Anaemia [Recovered/Resolved]

NARRATIVE: CASE EVENT DATE: 20121016
